FAERS Safety Report 9449964 (Version 1)
Quarter: 2013Q3

REPORT INFORMATION
  Report Type: Spontaneous
  Country: US (occurrence: US)
  Receive Date: 20130809
  Receipt Date: 20130809
  Transmission Date: 20140515
  Serious: Yes (Other)
  Sender: FDA-Public Use
  Company Number: US-BAUSCH-BL-2013-004393

PATIENT
  Age: 76 Year
  Sex: Male

DRUGS (3)
  1. BESIVANCE (BESIFLOXACIN OPHTHALMIC SUSPENSION) 0.6% [Suspect]
     Indication: PHACOTRABECULECTOMY
     Dosage: 1 DROP; FOUR TIMES A DAY; LEFT EYE
     Route: 047
     Dates: start: 20130518, end: 20130525
  2. BROMDAY 0.09% [Concomitant]
     Indication: PRODUCT USED FOR UNKNOWN INDICATION
     Dosage: 1 DROP; DAILY; LEFT EYE
     Route: 047
  3. DUREZOL [Concomitant]
     Indication: PRODUCT USED FOR UNKNOWN INDICATION
     Dosage: 1 DROP; FOUR TIMES A DAY; LEFT EYE
     Route: 047

REACTIONS (2)
  - Off label use [Recovered/Resolved]
  - Corneal epithelium defect [Recovered/Resolved]
